FAERS Safety Report 11356499 (Version 3)
Quarter: 2015Q4

REPORT INFORMATION
  Report Type: Spontaneous
  Country: US (occurrence: US)
  Receive Date: 20150807
  Receipt Date: 20151102
  Transmission Date: 20160304
  Serious: Yes (Hospitalization, Other)
  Sender: FDA-Public Use
  Company Number: US-JNJFOC-20150804480

PATIENT
  Age: 65 Year
  Sex: Male

DRUGS (15)
  1. DIPHENHYDRAMINE. [Concomitant]
     Active Substance: DIPHENHYDRAMINE
     Route: 065
  2. ASPIRIN. [Suspect]
     Active Substance: ASPIRIN
     Indication: ANTIPLATELET THERAPY
     Route: 065
  3. ALBUTEROL. [Concomitant]
     Active Substance: ALBUTEROL
     Route: 065
  4. FUROSEMIDE. [Concomitant]
     Active Substance: FUROSEMIDE
     Route: 065
  5. METFORMIN [Concomitant]
     Active Substance: METFORMIN HYDROCHLORIDE
     Indication: DIABETES MELLITUS
     Route: 065
  6. RANITIDINE [Concomitant]
     Active Substance: RANITIDINE\RANITIDINE HYDROCHLORIDE
     Route: 065
  7. ASPIRIN. [Suspect]
     Active Substance: ASPIRIN
     Indication: ANTIPLATELET THERAPY
     Route: 065
  8. AMLODIPINE [Concomitant]
     Active Substance: AMLODIPINE BESYLATE
     Route: 065
  9. TERAZOSIN [Concomitant]
     Active Substance: TERAZOSIN\TERAZOSIN HYDROCHLORIDE
     Route: 065
  10. GLIPIZIDE. [Concomitant]
     Active Substance: GLIPIZIDE
     Route: 065
  11. LOSARTAN. [Concomitant]
     Active Substance: LOSARTAN
     Indication: HYPERTENSION
     Route: 065
  12. XARELTO [Suspect]
     Active Substance: RIVAROXABAN
     Indication: ATRIAL FIBRILLATION
     Route: 048
     Dates: start: 201404, end: 20140802
  13. PRAVASTATIN [Concomitant]
     Active Substance: PRAVASTATIN\PRAVASTATIN SODIUM
     Route: 065
  14. CHOLECALCIFEROL [Concomitant]
     Active Substance: CHOLECALCIFEROL
     Route: 065
  15. CLINORIL [Concomitant]
     Active Substance: SULINDAC
     Route: 065

REACTIONS (8)
  - Upper gastrointestinal haemorrhage [Recovered/Resolved]
  - Epistaxis [Unknown]
  - Post-traumatic stress disorder [Unknown]
  - Haemorrhagic diathesis [Unknown]
  - Internal haemorrhage [Unknown]
  - Haemorrhagic anaemia [Recovered/Resolved]
  - Increased tendency to bruise [Unknown]
  - Haematemesis [Recovered/Resolved]

NARRATIVE: CASE EVENT DATE: 201407
